FAERS Safety Report 21713924 (Version 1)
Quarter: 2022Q4

REPORT INFORMATION
  Report Type: Spontaneous
  Country: US (occurrence: None)
  Receive Date: 20221210
  Receipt Date: 20221210
  Transmission Date: 20230113
  Serious: No
  Sender: FDA-Public Use
  Company Number: None

PATIENT
  Age: 31 Year
  Sex: Female
  Weight: 90 kg

DRUGS (10)
  1. CLOZAPINE [Suspect]
     Active Substance: CLOZAPINE
     Indication: Schizophrenia
     Dates: start: 20170620
  2. TRULICITY [Suspect]
     Active Substance: DULAGLUTIDE
  3. CLOZAPINE [Concomitant]
     Active Substance: CLOZAPINE
  4. Trulicity (we can^t get it right now) [Concomitant]
  5. XIGDUO XR [Concomitant]
     Active Substance: DAPAGLIFLOZIN PROPANEDIOL\METFORMIN HYDROCHLORIDE
  6. LAMOTRIGINE [Concomitant]
     Active Substance: LAMOTRIGINE
  7. DONEPEZIL [Concomitant]
     Active Substance: DONEPEZIL
  8. FLUVOXAMINE [Concomitant]
     Active Substance: FLUVOXAMINE
  9. LINZESS [Concomitant]
     Active Substance: LINACLOTIDE
  10. Misc Vitamins [Concomitant]

REACTIONS (1)
  - Vomiting [None]

NARRATIVE: CASE EVENT DATE: 20221202
